FAERS Safety Report 12620307 (Version 2)
Quarter: 2016Q3

REPORT INFORMATION
  Report Type: Spontaneous
  Country: JP (occurrence: JP)
  Receive Date: 20160803
  Receipt Date: 20160909
  Transmission Date: 20161109
  Serious: Yes (Hospitalization)
  Sender: FDA-Public Use
  Company Number: JP-ASTRAZENECA-2016SE58341

PATIENT
  Age: 27565 Day
  Sex: Female
  Weight: 44 kg

DRUGS (3)
  1. ONGLYZA [Suspect]
     Active Substance: SAXAGLIPTIN HYDROCHLORIDE
     Indication: DIABETES MELLITUS
     Route: 048
     Dates: start: 20140304, end: 20160511
  2. BONOTEO [Suspect]
     Active Substance: MINODRONIC ACID
     Indication: OSTEOPOROSIS
     Dosage: 50 MG, 1X/MONTH;
     Route: 048
     Dates: start: 20140219, end: 20160511
  3. AMLODIN OD [Suspect]
     Active Substance: AMLODIPINE BESYLATE
     Indication: HYPERTENSION
     Dosage: 5 MG IN THE MORNING, 2.5 MG IN THE EVENING
     Route: 048
     Dates: start: 20130808, end: 20160511

REACTIONS (8)
  - Blood creatine phosphokinase increased [Recovered/Resolved]
  - Decreased appetite [Unknown]
  - White blood cell count decreased [Recovered/Resolved]
  - Hepatic function abnormal [Recovered/Resolved]
  - Hypokalaemia [Recovered/Resolved]
  - Dysgeusia [Unknown]
  - Platelet count decreased [Recovered/Resolved]
  - Hypocalcaemia [Recovered/Resolved]

NARRATIVE: CASE EVENT DATE: 20160511
